FAERS Safety Report 6699934-7 (Version None)
Quarter: 2010Q2

REPORT INFORMATION
  Report Type: 
  Country: None (occurrence: None)
  Receive Date: 20100428
  Receipt Date: 20100415
  Transmission Date: 20101027
  Serious: Yes (Other)
  Sender: FDA-Public Use
  Company Number: PHHY2010CA23998

PATIENT
  Sex: Male

DRUGS (2)
  1. CLOZARIL [Suspect]
     Dosage: UNK
     Dates: start: 19980623, end: 19980930
  2. ATIVAN [Concomitant]

REACTIONS (5)
  - FEELING ABNORMAL [None]
  - HAEMOGLOBIN DECREASED [None]
  - HALLUCINATION, AUDITORY [None]
  - MONOCYTE COUNT INCREASED [None]
  - RED BLOOD CELL COUNT DECREASED [None]
